FAERS Safety Report 7190333-0 (Version None)
Quarter: 2010Q4

REPORT INFORMATION
  Report Type: 
  Country: None (occurrence: None)
  Receive Date: 20101221
  Receipt Date: 20101221
  Transmission Date: 20110411
  Serious: Yes (Life-Threatening, Other)
  Sender: FDA-Public Use
  Company Number: None

PATIENT
  Age: 57 Year
  Sex: Female
  Weight: 78.0187 kg

DRUGS (4)
  1. FOSINOPRIL SODIUM [Suspect]
     Indication: HYPERTENSION
     Dosage: 10MG 1 TAB DAILY MOUTH
     Route: 048
     Dates: start: 20100122
  2. FOSINOPRIL SODIUM [Suspect]
     Indication: HYPERTENSION
     Dosage: 10MG 1 TAB DAILY MOUTH
     Route: 048
     Dates: start: 20100817
  3. FOSINOPRIL SODIUM [Suspect]
     Indication: HYPERTENSION
     Dosage: 10MG 1 TAB DAILY MOUTH
     Route: 048
     Dates: start: 20101105
  4. FOSINOPRIL SODIUM [Suspect]

REACTIONS (10)
  - ASTHENIA [None]
  - DIZZINESS [None]
  - FATIGUE [None]
  - INSOMNIA [None]
  - NASAL CONGESTION [None]
  - PHARYNGEAL OEDEMA [None]
  - SOMNOLENCE [None]
  - SWELLING FACE [None]
  - SWOLLEN TONGUE [None]
  - VERTIGO [None]
